FAERS Safety Report 5254002-6 (Version None)
Quarter: 2007Q1

REPORT INFORMATION
  Report Type: 
  Country: None (occurrence: None)
  Receive Date: 20070302
  Receipt Date: 20070222
  Transmission Date: 20070707
  Serious: Yes (Other)
  Sender: FDA-Public Use
  Company Number: US-JNJFOC-20070205854

PATIENT
  Sex: Female
  Weight: 47.17 kg

DRUGS (5)
  1. ORTHO EVRA [Suspect]
     Indication: CONTRACEPTION
     Route: 062
     Dates: start: 20060801
  2. RIFAMPIN [Concomitant]
     Indication: TUBERCULOSIS
     Route: 048
     Dates: start: 20070101
  3. PYRAZINAMIDE [Concomitant]
     Indication: TUBERCULOSIS
     Route: 048
     Dates: start: 20070101
  4. ISONIAZID [Concomitant]
     Indication: TUBERCULOSIS
     Dates: start: 20070101
  5. VB6 [Concomitant]
     Indication: MEDICAL DIET
     Route: 048

REACTIONS (2)
  - METRORRHAGIA [None]
  - TUBERCULOSIS [None]
